FAERS Safety Report 7509835-X (Version None)
Quarter: 2011Q2

REPORT INFORMATION
  Report Type: 
  Country: None (occurrence: None)
  Receive Date: 20110527
  Receipt Date: 20110520
  Transmission Date: 20111010
  Serious: Yes (Other)
  Sender: FDA-Public Use
  Company Number: A0929320A

PATIENT
  Sex: Male
  Weight: 17 kg

DRUGS (4)
  1. ALBUTEROL [Suspect]
     Indication: ASTHMA
     Dosage: 2PUFF SIX TIMES PER DAY
     Route: 055
     Dates: start: 20101202
  2. AVAMYS [Suspect]
     Dosage: 1PUFF AT NIGHT
     Route: 045
     Dates: start: 20101202
  3. SERETIDE [Suspect]
     Indication: ASTHMA
     Dosage: 1PUFF TWICE PER DAY
     Route: 055
     Dates: start: 20101202
  4. SINGULAIR [Suspect]
     Dosage: 1TAB AT NIGHT
     Route: 048
     Dates: start: 20110321

REACTIONS (4)
  - DRUG INEFFECTIVE [None]
  - ASTHMA [None]
  - ASTHMATIC CRISIS [None]
  - PRODUCT QUALITY ISSUE [None]
